FAERS Safety Report 10623018 (Version 2)
Quarter: 2014Q4

REPORT INFORMATION
  Report Type: Spontaneous
  Country: JP (occurrence: JP)
  Receive Date: 20141203
  Receipt Date: 20141203
  Transmission Date: 20150529
  Serious: Yes (Hospitalization)
  Sender: FDA-Public Use
  Company Number: JP-GLAXOSMITHKLINE-B1036343A

PATIENT
  Age: 49 Year
  Sex: Female

DRUGS (11)
  1. TRADITIONAL CHINESE MEDICINE [Concomitant]
     Active Substance: HERBALS
     Indication: DEPRESSION
     Dosage: UNK
  2. TRADITIONAL CHINESE MEDICINE [Concomitant]
     Active Substance: HERBALS
     Indication: DEPRESSION
     Dosage: UNK
  3. LAMOTRIGINE. [Suspect]
     Active Substance: LAMOTRIGINE
     Indication: DEPRESSION
     Dosage: UNK
     Route: 048
     Dates: start: 20140306, end: 20140827
  4. FAMOTIDINE. [Concomitant]
     Active Substance: FAMOTIDINE
     Indication: DEPRESSION
     Dosage: UNK
  5. BLESIN [Concomitant]
     Active Substance: DICLOFENAC SODIUM
     Indication: DEPRESSION
     Dosage: UNK
  6. CYMBALTA [Concomitant]
     Active Substance: DULOXETINE HYDROCHLORIDE
     Indication: DEPRESSION
     Dosage: UNK
  7. TRADITIONAL CHINESE MEDICINE [Concomitant]
     Active Substance: HERBALS
     Indication: DEPRESSION
     Dosage: UNK
  8. ETHYL LOFLAZEPATE [Concomitant]
     Active Substance: ETHYL LOFLAZEPATE
     Indication: DEPRESSION
     Dosage: UNK
  9. PRAVASTATIN [Concomitant]
     Active Substance: PRAVASTATIN\PRAVASTATIN SODIUM
     Indication: DEPRESSION
     Dosage: UNK
  10. ABILIFY [Concomitant]
     Active Substance: ARIPIPRAZOLE
     Dosage: UNK
  11. BROTIZOLAM [Concomitant]
     Active Substance: BROTIZOLAM
     Indication: DEPRESSION
     Dosage: UNK

REACTIONS (8)
  - Rash erythematous [Recovering/Resolving]
  - Lymphadenopathy [Unknown]
  - Drug eruption [Recovering/Resolving]
  - Hepatic function abnormal [Unknown]
  - Erythema [Recovering/Resolving]
  - Alanine aminotransferase increased [Unknown]
  - Face oedema [Recovering/Resolving]
  - Gamma-glutamyltransferase increased [Unknown]

NARRATIVE: CASE EVENT DATE: 20140827
